FAERS Safety Report 10541785 (Version 1)
Quarter: 2014Q4

REPORT INFORMATION
  Report Type: Spontaneous
  Country: US (occurrence: None)
  Receive Date: 20141010
  Receipt Date: 20141010
  Transmission Date: 20150529
  Serious: Yes (Other)
  Sender: FDA-Public Use
  Company Number: 163-POMAL-14033948

PATIENT
  Age: 59 Year
  Sex: Male
  Weight: 91.2 kg

DRUGS (7)
  1. AVAPRO [Concomitant]
     Active Substance: IRBESARTAN
  2. CHLORTHALIDONE (CHLORTALIDONE) [Concomitant]
     Active Substance: CHLORTHALIDONE
  3. AMLODIPINE BESYLATE (AMLODIPINE BESILATE) [Concomitant]
     Active Substance: AMLODIPINE BESYLATE
  4. COUMADIN [Concomitant]
     Active Substance: WARFARIN SODIUM
  5. POMALYST [Suspect]
     Active Substance: POMALIDOMIDE
     Indication: PLASMA CELL MYELOMA
     Dosage: 4 MG, 21 IN 28 D, PO
     Dates: start: 20140312, end: 20140315
  6. DEXAMETHASONE. [Concomitant]
     Active Substance: DEXAMETHASONE
  7. LATANOPROST. [Concomitant]
     Active Substance: LATANOPROST

REACTIONS (3)
  - Unevaluable event [None]
  - Urticaria [None]
  - Rash [None]

NARRATIVE: CASE EVENT DATE: 201403
